FAERS Safety Report 8993119 (Version 2)
Quarter: 2013Q2

REPORT INFORMATION
  Report Type: Spontaneous
  Country: BR (occurrence: BR)
  Receive Date: 20130102
  Receipt Date: 20130508
  Transmission Date: 20140414
  Serious: Yes (Hospitalization, Other)
  Sender: FDA-Public Use
  Company Number: BR-ASTRAZENECA-2012SE95519

PATIENT
  Age: 61 Year
  Sex: Female

DRUGS (8)
  1. CRESTOR [Suspect]
     Indication: BLOOD CHOLESTEROL INCREASED
     Route: 048
     Dates: start: 2012, end: 20121209
  2. CRESTOR [Suspect]
     Indication: BLOOD CHOLESTEROL INCREASED
     Route: 048
     Dates: start: 20121210
  3. AMLODIPINE BESYLATE [Suspect]
     Indication: HYPERTENSION
     Route: 048
  4. ATENSINA [Suspect]
     Indication: HYPERTENSION
     Route: 048
  5. ASPIRINA PREVENT [Concomitant]
     Route: 048
  6. GLIFAGE [Concomitant]
     Indication: DIABETES MELLITUS
     Route: 048
  7. ENALAPRIL MALEATE [Concomitant]
     Indication: HYPERTENSION
     Route: 048
  8. HYDROCHLOROTHIAZIDE [Concomitant]
     Indication: HYPERTENSION
     Route: 048

REACTIONS (10)
  - Sinusitis [Recovered/Resolved]
  - Bronchitis [Recovered/Resolved]
  - Osteoporosis [Recovering/Resolving]
  - Tendonitis [Recovered/Resolved]
  - Arthritis [Recovered/Resolved]
  - Lung abscess [Unknown]
  - Myositis [Recovered/Resolved]
  - Local swelling [Recovered/Resolved]
  - Carotid arteriosclerosis [Unknown]
  - Gastrooesophageal reflux disease [Recovering/Resolving]
